FAERS Safety Report 14519432 (Version 4)
Quarter: 2018Q3

REPORT INFORMATION
  Report Type: Report from Study
  Country: JP (occurrence: JP)
  Receive Date: 20180212
  Receipt Date: 20180718
  Transmission Date: 20181010
  Serious: Yes (Death)
  Sender: FDA-Public Use
  Company Number: JP-BEH-2018087815

PATIENT
  Age: 62 Year
  Sex: Male
  Weight: 65 kg

DRUGS (5)
  1. BAYASPIRIN [Suspect]
     Active Substance: ASPIRIN
     Dosage: UNK
     Route: 048
     Dates: end: 20170925
  2. EFIENT [Suspect]
     Active Substance: PRASUGREL HYDROCHLORIDE
     Dosage: UNK
     Route: 048
     Dates: end: 20170925
  3. WARFARIN                           /00014803/ [Suspect]
     Active Substance: WARFARIN
     Indication: VENTRICULAR HYPERTROPHY
     Dosage: 2.5 MG, UNK
     Route: 048
     Dates: start: 20170302, end: 20170924
  4. KAYTWO [Concomitant]
     Active Substance: MENATETRENONE
     Indication: ANTICOAGULANT THERAPY
     Dosage: 30 MG, UNK
     Route: 065
     Dates: start: 20170925, end: 20170925
  5. BERIPLEX P/N [Suspect]
     Active Substance: COAGULATION FACTOR IX HUMAN\COAGULATION FACTOR VII HUMAN\COAGULATION FACTOR X HUMAN\PROTEIN C\PROTEIN S HUMAN\PROTHROMBIN
     Indication: SURGERY
     Dosage: 2000 IU, TOT
     Route: 042
     Dates: start: 20170925

REACTIONS (3)
  - Altered state of consciousness [Fatal]
  - Brain herniation [Fatal]
  - Cerebellar haemorrhage [Fatal]

NARRATIVE: CASE EVENT DATE: 20170925
